FAERS Safety Report 9028833 (Version 4)
Quarter: 2013Q1

REPORT INFORMATION
  Report Type: Report from Study
  Country: DE (occurrence: DE)
  Receive Date: 20130124
  Receipt Date: 20130304
  Transmission Date: 20140127
  Serious: Yes (Hospitalization)
  Sender: FDA-Public Use
  Company Number: DE-GENZYME-CAMP-1002672

PATIENT
  Age: 86 Year
  Sex: Female
  Weight: 55 kg

DRUGS (4)
  1. CAMPATH [Suspect]
     Indication: CHRONIC LYMPHOCYTIC LEUKAEMIA
     Dosage: 20 MG, QD (ON 1, 3 AND 5 DAY OF WEEK)
     Route: 058
     Dates: start: 20071206, end: 20121210
  2. TAZOBAC [Concomitant]
     Indication: BRONCHITIS
     Dosage: UNK
     Route: 065
     Dates: start: 20121223, end: 20121224
  3. AMOXICILLIN\CLAVULANATE POTASSIUM [Concomitant]
     Indication: BRONCHITIS
     Dosage: 875/125 UNK, BID
     Route: 065
     Dates: start: 20121224, end: 20130103
  4. KLACID [Concomitant]
     Indication: BRONCHITIS
     Dosage: 250 UNK, UNK
     Route: 065
     Dates: start: 20121223, end: 20130103

REACTIONS (3)
  - Pulmonary oedema [Recovered/Resolved with Sequelae]
  - Cardiac failure [Not Recovered/Not Resolved]
  - Infection [Recovered/Resolved with Sequelae]
